FAERS Safety Report 7125125-1 (Version None)
Quarter: 2010Q4

REPORT INFORMATION
  Report Type: 
  Country: None (occurrence: None)
  Receive Date: 20101129
  Receipt Date: 20101026
  Transmission Date: 20110411
  Serious: Yes (Hospitalization)
  Sender: FDA-Public Use
  Company Number: US-AMGEN-USACT2010002837

PATIENT

DRUGS (5)
  1. PEGFILGRASTIM [Suspect]
     Indication: GASTROINTESTINAL STROMAL TUMOUR
     Dosage: UNK
     Dates: start: 20060303, end: 20060502
  2. SUTENT                             /05510201/ [Concomitant]
     Indication: SINUSITIS
     Dosage: 37.5 MG, UNK
     Route: 048
     Dates: start: 20060130
  3. LEVAQUIN [Concomitant]
  4. NEXIUM [Concomitant]
  5. AFRIN                              /00070001/ [Suspect]
     Indication: SINUSITIS

REACTIONS (2)
  - HEADACHE [None]
  - MUSCULOSKELETAL STIFFNESS [None]
